FAERS Safety Report 7964090-1 (Version None)
Quarter: 2011Q4

REPORT INFORMATION
  Report Type: 
  Country: None (occurrence: None)
  Receive Date: 20111208
  Receipt Date: 20111205
  Transmission Date: 20120403
  Serious: Yes (Other)
  Sender: FDA-Public Use
  Company Number: US-BAYER-2011-111276

PATIENT
  Age: 62 Year
  Sex: Male

DRUGS (2)
  1. SORAFENIB (RAF KINASE INHIBITOR) [Suspect]
     Indication: HEPATIC NEOPLASM MALIGNANT
     Dosage: 400 MG, BID
     Dates: start: 20111108, end: 20111130
  2. BLOOD PRESSURE MEDICATION (NOS) [Concomitant]

REACTIONS (8)
  - MOTOR DYSFUNCTION [None]
  - LETHARGY [None]
  - SOMNOLENCE [None]
  - COORDINATION ABNORMAL [None]
  - BLOOD PRESSURE INCREASED [None]
  - NEUROLOGICAL SYMPTOM [None]
  - DISORIENTATION [None]
  - GAIT DISTURBANCE [None]
